FAERS Safety Report 7354555-8 (Version None)
Quarter: 2011Q1

REPORT INFORMATION
  Report Type: 
  Country: None (occurrence: None)
  Receive Date: 20110316
  Receipt Date: 20100914
  Transmission Date: 20110831
  Serious: Yes (Other)
  Sender: FDA-Public Use
  Company Number: US-BAYER-201029494NA

PATIENT
  Sex: Female
  Weight: 113.38 kg

DRUGS (5)
  1. YAZ [Suspect]
     Dosage: UNK
     Dates: start: 20080101
  2. CITALOPRAM HYDROBROMIDE [Concomitant]
  3. PROVERA [Concomitant]
  4. FEXOFENADINE [Concomitant]
  5. METFORMIN HCL [Concomitant]

REACTIONS (1)
  - DEEP VEIN THROMBOSIS [None]
